FAERS Safety Report 9065184 (Version 5)
Quarter: 2013Q3

REPORT INFORMATION
  Report Type: Spontaneous
  Country: US (occurrence: US)
  Receive Date: 20130214
  Receipt Date: 20130923
  Transmission Date: 20140515
  Serious: No
  Sender: FDA-Public Use
  Company Number: US-PFIZER INC-2013056339

PATIENT
  Age: 62 Year
  Sex: Female
  Weight: 95.24 kg

DRUGS (11)
  1. LYRICA [Suspect]
     Indication: FIBROMYALGIA
     Dosage: 25 MG, UNK
     Route: 048
  2. LYRICA [Suspect]
     Dosage: 75 MG, UNK
     Route: 048
  3. LYRICA [Suspect]
     Dosage: 150 MG, 2X/DAY
     Route: 048
     Dates: end: 201309
  4. ZOLPIDEM TARTRATE [Suspect]
     Indication: INSOMNIA
     Dosage: 12.5 MG, UNK
  5. ALLERTEC [Concomitant]
     Indication: ASTHMA
     Dosage: UNK, 2X/DAY
  6. HYDROCHLOROTHIAZIDE/TRIAMTERENE [Concomitant]
     Indication: HYPERTENSION
     Dosage: 75/50MG DAILY
  7. DOXYCYCLINE [Concomitant]
     Indication: ROSACEA
     Dosage: 100 MG, 1X/DAY
  8. IMIPRAMINE [Concomitant]
     Indication: URINARY INCONTINENCE
     Dosage: 50 MG, 2X/DAY
  9. OMEPRAZOLE [Concomitant]
     Dosage: 20 MG, UNK
  10. FISH OIL [Concomitant]
     Dosage: UNK
  11. VITAMIN E [Concomitant]
     Dosage: UNK

REACTIONS (10)
  - Intentional drug misuse [Unknown]
  - Pain [Unknown]
  - Diarrhoea [Unknown]
  - Influenza [Unknown]
  - Weight increased [Unknown]
  - Increased appetite [Unknown]
  - Retching [Unknown]
  - Drug ineffective [Unknown]
  - Pain in extremity [Unknown]
  - Malaise [Unknown]
